FAERS Safety Report 12436467 (Version 1)
Quarter: 2016Q2

REPORT INFORMATION
  Report Type: Spontaneous
  Country: CA (occurrence: CA)
  Receive Date: 20160606
  Receipt Date: 20160606
  Transmission Date: 20160815
  Serious: Yes (Other)
  Sender: FDA-Public Use
  Company Number: CA-AMGEN-CANSP2016071044

PATIENT
  Age: 83 Year
  Sex: Female

DRUGS (4)
  1. METHOTREXATE [Suspect]
     Active Substance: METHOTREXATE
     Indication: RHEUMATOID ARTHRITIS
     Dosage: UNK
     Route: 065
  2. ACTEMRA [Suspect]
     Active Substance: TOCILIZUMAB
     Indication: PRODUCT USED FOR UNKNOWN INDICATION
     Dosage: 400 MG, UNK
     Route: 042
     Dates: start: 201104, end: 201505
  3. ORENCIA [Suspect]
     Active Substance: ABATACEPT
     Indication: PRODUCT USED FOR UNKNOWN INDICATION
     Dosage: 500 MG, UNK
     Route: 042
     Dates: start: 200711, end: 201004
  4. ENBREL [Suspect]
     Active Substance: ETANERCEPT
     Indication: RHEUMATOID ARTHRITIS
     Dosage: 50 MG, QWK
     Route: 065
     Dates: start: 200504, end: 200711

REACTIONS (14)
  - Rheumatoid arthritis [Unknown]
  - Gait disturbance [Unknown]
  - Toe amputation [Unknown]
  - Burning sensation [Unknown]
  - Pain [Unknown]
  - Impaired healing [Unknown]
  - Activities of daily living impaired [Unknown]
  - Drug effect decreased [Unknown]
  - Headache [Unknown]
  - Mobility decreased [Unknown]
  - Synovitis [Unknown]
  - Pneumonitis [Unknown]
  - Hand deformity [Unknown]
  - Lung disorder [Unknown]

NARRATIVE: CASE EVENT DATE: 20151119
